FAERS Safety Report 10233706 (Version 2)
Quarter: 2014Q2

REPORT INFORMATION
  Report Type: Report from Study
  Country: US (occurrence: US)
  Receive Date: 20140612
  Receipt Date: 20140612
  Transmission Date: 20141212
  Serious: Yes (Other)
  Sender: FDA-Public Use
  Company Number: US-GILEAD-2007-0012627

PATIENT
  Age: 31 Year
  Sex: Female

DRUGS (4)
  1. TRUVADA [Suspect]
     Indication: HIV INFECTION
     Dosage: 1 DF, QD
     Route: 048
     Dates: start: 20070201
  2. VIRAMUNE [Suspect]
     Indication: HIV INFECTION
     Dosage: 400 MG, QD
     Route: 048
     Dates: start: 20070201
  3. SUSTIVA [Suspect]
     Indication: HIV INFECTION
     Dosage: 600 MG, QD
     Route: 048
     Dates: end: 20070201
  4. TRIMETHOPRIM SULFAMETHOXAZOLE [Concomitant]

REACTIONS (3)
  - Oligohydramnios [Unknown]
  - Ultrasound antenatal screen abnormal [Recovered/Resolved]
  - Pregnancy [Recovered/Resolved]
